FAERS Safety Report 5959222-0 (Version None)
Quarter: 2008Q4

REPORT INFORMATION
  Report Type: 
  Country: None (occurrence: None)
  Receive Date: 20081120
  Receipt Date: 20080815
  Transmission Date: 20090506
  Serious: No
  Sender: FDA-Public Use
  Company Number: A0742852A

PATIENT
  Age: 78 Year
  Sex: Female

DRUGS (2)
  1. BUPROPION HYDROCHLORIDE [Suspect]
     Indication: DEPRESSION
     Dosage: 130MG TWICE PER DAY
     Route: 048
     Dates: start: 20080601, end: 20080807
  2. ADALAT [Concomitant]

REACTIONS (1)
  - DRUG INEFFECTIVE [None]
